FAERS Safety Report 4877903-7 (Version None)
Quarter: 2005Q4

REPORT INFORMATION
  Report Type: 
  Country: None (occurrence: None)
  Receive Date: 20051206
  Receipt Date: 20050909
  Transmission Date: 20060501
  Serious: No
  Sender: FDA-Public Use
  Company Number: USA0509107697

PATIENT
  Age: 57 Year
  Sex: Female

DRUGS (9)
  1. CYMBALTA [Suspect]
     Indication: BIPOLAR DISORDER
     Dosage: 60 MG DAY
     Dates: start: 20050101
  2. KLONOPIN [Concomitant]
  3. ESZOPICLONE [Concomitant]
  4. SINGULAIR [Concomitant]
  5. ESTRADIOL INJ [Concomitant]
  6. PROTONIX [Concomitant]
  7. ZOCOR [Concomitant]
  8. LISINOPRIL [Concomitant]
  9. CONCERTA [Concomitant]

REACTIONS (3)
  - ABDOMINAL PAIN UPPER [None]
  - ANOREXIA [None]
  - ASTHENIA [None]
